FAERS Safety Report 17624098 (Version 1)
Quarter: 2020Q2

REPORT INFORMATION
  Report Type: Spontaneous
  Country: US (occurrence: US)
  Receive Date: 20200403
  Receipt Date: 20200403
  Transmission Date: 20200713
  Serious: Yes (Hospitalization, Other)
  Sender: FDA-Public Use
  Company Number: NVSC2020US090011

PATIENT
  Age: 51 Year
  Sex: Female

DRUGS (2)
  1. HYDROXYCHLOROQUINE [Suspect]
     Active Substance: HYDROXYCHLOROQUINE
     Indication: SYSTEMIC LUPUS ERYTHEMATOSUS
     Dosage: 200 UNK, BID
     Route: 065
  2. PREDNISONE. [Concomitant]
     Active Substance: PREDNISONE
     Indication: SYSTEMIC LUPUS ERYTHEMATOSUS
     Dosage: UNK
     Route: 065

REACTIONS (6)
  - Peripheral swelling [Recovering/Resolving]
  - Cardiotoxicity [Unknown]
  - Abdominal distension [Recovering/Resolving]
  - Orthopnoea [Recovering/Resolving]
  - Cardiomyopathy [Unknown]
  - Dyspnoea exertional [Recovering/Resolving]
